FAERS Safety Report 23558041 (Version 1)
Quarter: 2024Q1

REPORT INFORMATION
  Report Type: Spontaneous
  Country: CA (occurrence: None)
  Receive Date: 20240223
  Receipt Date: 20240223
  Transmission Date: 20240409
  Serious: Yes (Hospitalization)
  Sender: FDA-Public Use
  Company Number: CA-ROCHE-3511773

PATIENT
  Age: 27 Year
  Sex: Female
  Weight: 120 kg

DRUGS (3)
  1. RITUXIMAB [Suspect]
     Active Substance: RITUXIMAB
     Indication: Systemic lupus erythematosus
     Route: 041
  2. FERRIC POLYSACCHARIDE COMPLEX [Concomitant]
     Active Substance: FERRIC POLYSACCHARIDE COMPLEX
  3. SERTRALINE [Concomitant]
     Active Substance: SERTRALINE HYDROCHLORIDE
     Route: 065

REACTIONS (18)
  - Arthralgia [Recovered/Resolved]
  - Blood creatinine increased [Recovered/Resolved]
  - Blood urine present [Recovered/Resolved]
  - Butterfly rash [Recovered/Resolved]
  - C-reactive protein increased [Recovered/Resolved]
  - COVID-19 pneumonia [Recovered/Resolved]
  - Central nervous system lupus [Recovered/Resolved]
  - Haemoglobin decreased [Recovered/Resolved]
  - Lupus nephritis [Recovered/Resolved]
  - Mouth ulceration [Recovered/Resolved]
  - Nephropathy [Recovered/Resolved]
  - Off label use [Unknown]
  - Protein urine present [Recovered/Resolved]
  - Psychotic disorder [Recovered/Resolved]
  - Rash [Recovered/Resolved]
  - Red blood cell sedimentation rate increased [Recovered/Resolved]
  - Systemic lupus erythematosus [Recovered/Resolved]
  - Vasculitis [Recovered/Resolved]
